FAERS Safety Report 21109390 (Version 2)
Quarter: 2022Q4

REPORT INFORMATION
  Report Type: Other
  Country: DE (occurrence: None)
  Receive Date: 20220721
  Receipt Date: 20221014
  Transmission Date: 20230113
  Serious: Yes (Other)
  Sender: FDA-Public Use
  Company Number: DE-ROCHE-3136798

PATIENT
  Age: 25 Year
  Sex: Female

DRUGS (5)
  1. OCREVUS [Suspect]
     Active Substance: OCRELIZUMAB
     Indication: Multiple sclerosis
     Route: 042
     Dates: start: 20220107
  2. AMITRIPTYLINE HYDROCHLORIDE [Concomitant]
     Active Substance: AMITRIPTYLINE HYDROCHLORIDE
     Route: 065
  3. IBUPROFEN [Concomitant]
     Active Substance: IBUPROFEN
     Route: 065
  4. LORATADINE [Concomitant]
     Active Substance: LORATADINE
     Route: 065
  5. TOPAMAX [Concomitant]
     Active Substance: TOPIRAMATE

REACTIONS (6)
  - Dyspnoea at rest [Recovered/Resolved]
  - Oropharyngeal pain [Recovered/Resolved]
  - Fatigue [Recovered/Resolved]
  - Dyspnoea exertional [Recovered/Resolved]
  - Hyperhidrosis [Recovered/Resolved]
  - Spinal pain [Not Recovered/Not Resolved]

NARRATIVE: CASE EVENT DATE: 20220107
